FAERS Safety Report 5921322-9 (Version None)
Quarter: 2008Q4

REPORT INFORMATION
  Report Type: 
  Country: None (occurrence: None)
  Receive Date: 20081016
  Receipt Date: 20081010
  Transmission Date: 20090506
  Serious: Yes (Other)
  Sender: FDA-Public Use
  Company Number: CA-MERCK-0809CAN00061

PATIENT
  Age: 66 Year
  Sex: Female

DRUGS (5)
  1. FOSAMAX [Suspect]
     Indication: OSTEOPOROSIS
     Route: 048
  2. CARBAMAZEPINE [Concomitant]
     Route: 065
  3. NORTRIPTYLINE [Concomitant]
     Route: 065
  4. VALPROIC ACID [Concomitant]
     Route: 065
  5. CALCITRIOL [Concomitant]
     Route: 065

REACTIONS (1)
  - OSTEONECROSIS [None]
